FAERS Safety Report 9670006 (Version 2)
Quarter: 2013Q4

REPORT INFORMATION
  Report Type: Spontaneous
  Country: US (occurrence: US)
  Receive Date: 20131105
  Receipt Date: 20131105
  Transmission Date: 20140711
  Serious: Yes (Hospitalization)
  Sender: FDA-Public Use
  Company Number: US-UCBSA-097195

PATIENT
  Age: 76 Year
  Sex: Female
  Weight: 62.27 kg

DRUGS (8)
  1. CIMZIA [Suspect]
     Indication: RHEUMATOID ARTHRITIS
     Route: 058
     Dates: start: 20130724
  2. INSULIN 70/30 [Concomitant]
     Indication: DIABETES MELLITUS
     Dosage: NUMBER OF INTAKES: 2
     Route: 058
  3. COZAAR [Concomitant]
     Route: 048
  4. LOVXYL [Concomitant]
  5. PRIMIDONE [Concomitant]
  6. PREDNISONE [Concomitant]
     Indication: RHEUMATOID ARTHRITIS
     Route: 048
     Dates: start: 201310
  7. TAMIFLU PO [Concomitant]
     Dosage: DOSE UNKNOWN
     Route: 048
     Dates: end: 201310
  8. SALINE WITH POTASSIUM INTRAVENOUS [Concomitant]
     Dosage: UNKNOWN

REACTIONS (3)
  - Influenza [Recovered/Resolved]
  - Fall [Recovered/Resolved]
  - Laceration [Recovered/Resolved]
